FAERS Safety Report 19962126 (Version 2)
Quarter: 2022Q4

REPORT INFORMATION
  Report Type: Spontaneous
  Country: US (occurrence: US)
  Receive Date: 20211018
  Receipt Date: 20221010
  Transmission Date: 20230113
  Serious: Yes (Death, Other)
  Sender: FDA-Public Use
  Company Number: US-SA-SAC20211015000058

PATIENT
  Age: 76 Year
  Sex: Female

DRUGS (1)
  1. ZANTAC [Suspect]
     Active Substance: RANITIDINE HYDROCHLORIDE
     Indication: Dyspepsia
     Dosage: UNK
     Dates: start: 200401, end: 201703

REACTIONS (3)
  - Gastric cancer stage IV [Fatal]
  - Colorectal cancer stage II [Recovering/Resolving]
  - Breast cancer female [Unknown]

NARRATIVE: CASE EVENT DATE: 20070101
